FAERS Safety Report 6547484-0 (Version None)
Quarter: 2010Q1

REPORT INFORMATION
  Report Type: 
  Country: None (occurrence: None)
  Receive Date: 20100119
  Receipt Date: 20100108
  Transmission Date: 20100710
  Serious: Yes (Other)
  Sender: FDA-Public Use
  Company Number: FABR-1001133

PATIENT
  Age: 61 Year
  Sex: Male
  Weight: 90 kg

DRUGS (6)
  1. FABRAZYME [Suspect]
     Indication: FABRY'S DISEASE
     Dosage: 43 MG, Q2W, INTRAVENOUS; 87 MG, Q2W, INTRAVENOUS
     Route: 042
     Dates: end: 20090930
  2. FABRAZYME [Suspect]
     Indication: FABRY'S DISEASE
     Dosage: 43 MG, Q2W, INTRAVENOUS; 87 MG, Q2W, INTRAVENOUS
     Route: 042
     Dates: start: 20091001
  3. FABRAZYME [Suspect]
  4. ACETAMINOPHEN [Concomitant]
  5. BENADRYL [Concomitant]
  6. ATACAND [Concomitant]

REACTIONS (7)
  - BRONCHITIS CHRONIC [None]
  - CARDIAC DISORDER [None]
  - CHEST DISCOMFORT [None]
  - CONDITION AGGRAVATED [None]
  - DIASTOLIC DYSFUNCTION [None]
  - INCORRECT DOSE ADMINISTERED [None]
  - VENTRICULAR HYPERTROPHY [None]
